FAERS Safety Report 8021226-4 (Version None)
Quarter: 2011Q4

REPORT INFORMATION
  Report Type: 
  Country: None (occurrence: None)
  Receive Date: 20111229
  Receipt Date: 20110815
  Transmission Date: 20120403
  Serious: Yes (Hospitalization)
  Sender: FDA-Public Use
  Company Number: 003-057

PATIENT
  Age: 19 Month
  Sex: Female

DRUGS (1)
  1. CROFAB [Suspect]
     Indication: SNAKE BITE
     Dosage: 6 VIALS Q6H X 2, 2 VIALS Q6H X 3, ADDITIONAL 6 VIALS X 1
     Dates: start: 20110806, end: 20110812

REACTIONS (7)
  - ACTIVATED PARTIAL THROMBOPLASTIN TIME PROLONGED [None]
  - INTERNATIONAL NORMALISED RATIO INCREASED [None]
  - BLOOD ALKALINE PHOSPHATASE INCREASED [None]
  - PROTHROMBIN TIME PROLONGED [None]
  - LABORATORY TEST INTERFERENCE [None]
  - MYOGLOBIN URINE PRESENT [None]
  - BLOOD FIBRINOGEN DECREASED [None]
